FAERS Safety Report 5636161-6 (Version None)
Quarter: 2008Q1

REPORT INFORMATION
  Report Type: 
  Country: None (occurrence: None)
  Receive Date: 20080220
  Receipt Date: 20080214
  Transmission Date: 20080703
  Serious: Yes (Life-Threatening, Other)
  Sender: FDA-Public Use
  Company Number: 066-C5013-08020796

PATIENT
  Sex: Female

DRUGS (1)
  1. CC-5013 (LENALIDOMIDE) (CAPSULES) [Suspect]
     Indication: MULTIPLE MYELOMA
     Dosage: 15 MG, EVERY OTHER DAY, ORAL
     Route: 048

REACTIONS (2)
  - PARTIAL SEIZURES [None]
  - RENAL FAILURE [None]
